FAERS Safety Report 7339771-3 (Version None)
Quarter: 2011Q1

REPORT INFORMATION
  Report Type: 
  Country: None (occurrence: None)
  Receive Date: 20110303
  Receipt Date: 20110303
  Transmission Date: 20110831
  Serious: Yes (Other)
  Sender: FDA-Public Use
  Company Number: None

PATIENT
  Age: 59 Year
  Sex: Female
  Weight: 83.0083 kg

DRUGS (1)
  1. PREMARIN [Suspect]
     Indication: MENOPAUSE
     Dosage: 1 TAB BY MOUTH DAILY 1 PER DAY PO
     Route: 048
     Dates: start: 20101016, end: 20101215

REACTIONS (8)
  - THROAT IRRITATION [None]
  - DYSPEPSIA [None]
  - SWELLING [None]
  - BURNING SENSATION [None]
  - NASAL DISCOMFORT [None]
  - ORAL DISCOMFORT [None]
  - DECREASED APPETITE [None]
  - NAUSEA [None]
